FAERS Safety Report 5821830-5 (Version None)
Quarter: 2008Q3

REPORT INFORMATION
  Report Type: 
  Country: None (occurrence: None)
  Receive Date: 20080724
  Receipt Date: 20080709
  Transmission Date: 20090109
  Serious: No
  Sender: FDA-Public Use
  Company Number: US-BOEHRINGER INGELHEIM GMBH, GERMANY-2008-BP-09406BP

PATIENT
  Sex: Male
  Weight: 70 kg

DRUGS (7)
  1. AGGRENOX [Suspect]
     Indication: CEREBROVASCULAR ACCIDENT PROPHYLAXIS
     Route: 048
     Dates: start: 20080301
  2. AGGRENOX [Suspect]
     Indication: TRANSIENT ISCHAEMIC ATTACK
  3. ALPHAGAN OPH SOLUTION 0.1% [Concomitant]
     Dates: start: 20080416
  4. ATENOLOL [Concomitant]
     Route: 048
     Dates: start: 20080314
  5. COSOPT 2 - 0.5% OPH SOLUTION [Concomitant]
     Dates: start: 20080416
  6. RABEPRAZOLE EC [Concomitant]
     Route: 048
     Dates: start: 20080606
  7. TERAZOSIN HCL [Concomitant]
     Route: 048
     Dates: start: 20080314

REACTIONS (2)
  - HAEMOPTYSIS [None]
  - MOUTH HAEMORRHAGE [None]
